FAERS Safety Report 7223472-6 (Version None)
Quarter: 2011Q1

REPORT INFORMATION
  Report Type: 
  Country: None (occurrence: None)
  Receive Date: 20110112
  Receipt Date: 20100715
  Transmission Date: 20110831
  Serious: No
  Sender: FDA-Public Use
  Company Number: US-ALLERGAN-1009222US

PATIENT
  Age: 78 Year
  Sex: Male

DRUGS (2)
  1. RESTASIS [Suspect]
     Indication: DRY EYE
     Dosage: 1 GTT, QD
     Route: 047
     Dates: start: 20100601
  2. XALATAN [Concomitant]
     Indication: DRY EYE
     Dosage: 1 GTT, QD
     Route: 047
     Dates: start: 20100501

REACTIONS (3)
  - VISION BLURRED [None]
  - PHOTOPHOBIA [None]
  - VISUAL IMPAIRMENT [None]
